FAERS Safety Report 7053364-7 (Version None)
Quarter: 2010Q4

REPORT INFORMATION
  Report Type: 
  Country: None (occurrence: None)
  Receive Date: 20101014
  Receipt Date: 20101006
  Transmission Date: 20110411
  Serious: Yes (Hospitalization)
  Sender: FDA-Public Use
  Company Number: 2010SP053540

PATIENT
  Age: 23 Year
  Sex: Female
  Weight: 70 kg

DRUGS (4)
  1. IMPLANON [Suspect]
     Indication: CONTRACEPTION
     Dosage: 68 MG; ; SBDE
     Route: 059
     Dates: start: 20050301, end: 20080301
  2. IMPLANON [Suspect]
     Indication: CONTRACEPTION
     Dosage: 68 MG; ; SBDE
     Route: 059
     Dates: start: 20080304
  3. CITALOPRAM HYDROBROMIDE [Concomitant]
  4. KETAZOLAM [Concomitant]

REACTIONS (6)
  - AMENORRHOEA [None]
  - DYSFUNCTIONAL UTERINE BLEEDING [None]
  - MEDICAL DEVICE COMPLICATION [None]
  - METRORRHAGIA [None]
  - TREATMENT FAILURE [None]
  - UTERINE HAEMORRHAGE [None]
